FAERS Safety Report 23360513 (Version 2)
Quarter: 2024Q1

REPORT INFORMATION
  Report Type: Spontaneous
  Country: US (occurrence: US)
  Receive Date: 20240103
  Receipt Date: 20240210
  Transmission Date: 20240409
  Serious: No
  Sender: FDA-Public Use
  Company Number: US-AMGEN-USASP2023230713

PATIENT
  Age: 72 Year
  Sex: Female

DRUGS (2)
  1. NEULASTA [Suspect]
     Active Substance: PEGFILGRASTIM
     Indication: Prophylaxis
     Dosage: UNK, AFTER CHEMO
     Route: 065
  2. NEULASTA [Suspect]
     Active Substance: PEGFILGRASTIM
     Dosage: UNK, AFTER CHEMO
     Route: 065

REACTIONS (6)
  - Night sweats [Unknown]
  - Device malfunction [Unknown]
  - Unevaluable event [Unknown]
  - Drug dose omission by device [Unknown]
  - Pyrexia [Unknown]
  - Application site haemorrhage [Unknown]

NARRATIVE: CASE EVENT DATE: 20231223
